FAERS Safety Report 9937456 (Version 3)
Quarter: 2014Q2

REPORT INFORMATION
  Report Type: Report from Study
  Country: US (occurrence: US)
  Receive Date: 20140303
  Receipt Date: 20140516
  Transmission Date: 20141212
  Serious: Yes (Hospitalization, Other)
  Sender: FDA-Public Use
  Company Number: US-BIOGENIDEC-2014BI018347

PATIENT
  Age: 43 Year
  Sex: Male

DRUGS (4)
  1. TYSABRI [Suspect]
     Indication: CROHN^S DISEASE
     Route: 042
     Dates: start: 20130919, end: 20140120
  2. REMICADE [Concomitant]
  3. HUMIRA [Concomitant]
  4. CIMZIA [Concomitant]

REACTIONS (3)
  - Opportunistic infection [Unknown]
  - Immunology test abnormal [Unknown]
  - Crohn^s disease [Not Recovered/Not Resolved]
